FAERS Safety Report 6986613-1 (Version None)
Quarter: 2010Q3

REPORT INFORMATION
  Report Type: 
  Country: None (occurrence: None)
  Receive Date: 20100827
  Receipt Date: 20100112
  Transmission Date: 20110219
  Serious: Yes (Other)
  Sender: FDA-Public Use
  Company Number: AMAG201000028

PATIENT
  Age: 23 Year
  Sex: Female
  Weight: 82.1 kg

DRUGS (3)
  1. FERAHEME [Suspect]
     Indication: IRON DEFICIENCY ANAEMIA
     Dosage: 10 ML, (300 MG) PARTIAL DOSE RECEIVED, INTRAVENOUS
     Route: 042
     Dates: start: 20100106, end: 20100106
  2. FERAHEME [Suspect]
     Indication: RENAL FAILURE CHRONIC
     Dosage: 10 ML, (300 MG) PARTIAL DOSE RECEIVED, INTRAVENOUS
     Route: 042
     Dates: start: 20100106, end: 20100106
  3. CYANOCOBALAMIN [Concomitant]

REACTIONS (6)
  - CHILLS [None]
  - FLUSHING [None]
  - HYPERTENSION [None]
  - SKIN TIGHTNESS [None]
  - SNEEZING [None]
  - THROAT IRRITATION [None]
